FAERS Safety Report 6567305-X (Version None)
Quarter: 2010Q1

REPORT INFORMATION
  Report Type: 
  Country: None (occurrence: None)
  Receive Date: 20100202
  Receipt Date: 20100119
  Transmission Date: 20100710
  Serious: Yes (Other)
  Sender: FDA-Public Use
  Company Number: PHHY2010HR02806

PATIENT
  Age: 27 Year
  Sex: Female

DRUGS (5)
  1. DEFERASIROX [Suspect]
  2. HAEMOPHILUS INFLUENZAE B [Suspect]
  3. MENINGOCOCCAL VACCINES [Suspect]
  4. PREDNISONE [Concomitant]
  5. ENOXAPARIN SODIUM [Concomitant]

REACTIONS (6)
  - BLISTER [None]
  - INFLAMMATION [None]
  - MUSCLE NECROSIS [None]
  - OEDEMA PERIPHERAL [None]
  - SKIN LESION EXCISION [None]
  - SKIN NECROSIS [None]
